FAERS Safety Report 11640288 (Version 1)
Quarter: 2015Q4

REPORT INFORMATION
  Report Type: Spontaneous
  Country: FR (occurrence: FR)
  Receive Date: 20151019
  Receipt Date: 20151019
  Transmission Date: 20160304
  Serious: Yes (Life-Threatening)
  Sender: FDA-Public Use
  Company Number: FR-GLAXOSMITHKLINE-FR2015GSK147331

PATIENT
  Sex: Male

DRUGS (2)
  1. TIMENTIN [Suspect]
     Active Substance: CLAVULANATE POTASSIUM\TICARCILLIN DISODIUM
     Indication: STENOTROPHOMONAS INFECTION
     Dosage: 5 G, TID
     Route: 042
     Dates: start: 20151005, end: 20151014
  2. COLISTINE [Concomitant]
     Active Substance: COLISTIN
     Indication: STENOTROPHOMONAS INFECTION
     Dosage: UNK
     Dates: start: 20151005

REACTIONS (2)
  - Drug ineffective [Unknown]
  - Condition aggravated [Not Recovered/Not Resolved]

NARRATIVE: CASE EVENT DATE: 2015
